FAERS Safety Report 9251425 (Version 1)
Quarter: 2013Q1

REPORT INFORMATION
  Report Type: Spontaneous
  Country: US (occurrence: None)
  Receive Date: 20130305
  Receipt Date: 20130305
  Transmission Date: 20140127
  Serious: Yes (Other)
  Sender: FDA-Public Use
  Company Number: 163-21880-12063397

PATIENT
  Age: 62 Year
  Sex: Female

DRUGS (13)
  1. REVLIMID [Suspect]
     Indication: PLASMA CELL MYELOMA
     Dates: start: 200909
  2. ZOMETA (ZOLEDRONIC ACID) [Concomitant]
  3. VELCADE (BORTEZOMIB) [Concomitant]
  4. TYLENOL (PARACETAMOL) [Concomitant]
  5. DIOVAN (VALSARTAN) [Concomitant]
  6. VITAMINS [Concomitant]
  7. HCTZ (HYDROCHLORIDE) [Concomitant]
  8. FISH OIL (FISH OIL) [Concomitant]
  9. DECADRON (DEXAMETHASONE) [Concomitant]
  10. COUMADIN (WARFARIN SODIUM) [Concomitant]
  11. CALCIUM (CALCIUM) [Concomitant]
  12. BENADRYL (DIPHENHYDRAMINE HYDROCHLORIDE) [Concomitant]
  13. ACYCLOVIR (ACICLOVIR) (ACICLOVIR) [Concomitant]

REACTIONS (2)
  - Loss of consciousness [None]
  - Blood pressure decreased [None]
